FAERS Safety Report 20535729 (Version 1)
Quarter: 2022Q1

REPORT INFORMATION
  Report Type: Spontaneous
  Country: HR (occurrence: HR)
  Receive Date: 20220302
  Receipt Date: 20220302
  Transmission Date: 20220423
  Serious: Yes (Other)
  Sender: FDA-Public Use
  Company Number: None

PATIENT
  Age: 66 Year
  Sex: Male
  Weight: 78 kg

DRUGS (1)
  1. TRAMADOL HYDROCHLORIDE [Suspect]
     Active Substance: TRAMADOL HYDROCHLORIDE
     Indication: Bone pain
     Dosage: 10 DOSAGE FORM
     Route: 048
     Dates: start: 20210930, end: 20211005

REACTIONS (4)
  - Altered state of consciousness [Recovering/Resolving]
  - Accidental overdose [Recovering/Resolving]
  - Product communication issue [Recovering/Resolving]
  - Somnolence [Recovering/Resolving]

NARRATIVE: CASE EVENT DATE: 20210930
